FAERS Safety Report 5458063-0 (Version None)
Quarter: 2007Q3

REPORT INFORMATION
  Report Type: 
  Country: None (occurrence: None)
  Receive Date: 20070919
  Receipt Date: 20070912
  Transmission Date: 20080115
  Serious: Yes (Other)
  Sender: FDA-Public Use
  Company Number: PHBS2007JP14682

PATIENT
  Age: 55 Year
  Sex: Female

DRUGS (3)
  1. CARBIDOPA AND LEVODOPA [Concomitant]
     Dosage: 500 MG, QID
     Route: 048
  2. PARLODEL [Suspect]
     Indication: PARKINSON'S DISEASE
     Dosage: 5 MG/DAY
     Route: 048
  3. APOMORPHINE [Concomitant]
     Dosage: 1 MG, UNK
     Route: 058

REACTIONS (5)
  - CONDITION AGGRAVATED [None]
  - DYSKINESIA [None]
  - DYSTONIA [None]
  - HALLUCINATION [None]
  - PERSECUTORY DELUSION [None]
